FAERS Safety Report 6764465-2 (Version None)
Quarter: 2010Q2

REPORT INFORMATION
  Report Type: 
  Country: None (occurrence: None)
  Receive Date: 20100610
  Receipt Date: 20100603
  Transmission Date: 20101027
  Serious: Yes (Other)
  Sender: FDA-Public Use
  Company Number: US-SANOFI-AVENTIS-2010SA032611

PATIENT
  Age: 61 Year
  Sex: Female

DRUGS (5)
  1. LANTUS [Suspect]
     Indication: TYPE 2 DIABETES MELLITUS
     Dosage: DOSE:25 UNIT(S)
     Route: 058
     Dates: start: 20040101
  2. SOLOSTAR [Suspect]
     Dates: start: 20040101
  3. HUMALOG [Concomitant]
     Route: 065
  4. CHOLESTEROL- AND TRIGLYCERIDE REDUCERS [Concomitant]
  5. METFORMIN [Concomitant]
     Route: 065

REACTIONS (2)
  - BLOOD GLUCOSE INCREASED [None]
  - CORONARY ARTERY BYPASS [None]
